FAERS Safety Report 17396034 (Version 2)
Quarter: 2020Q1

REPORT INFORMATION
  Report Type: Spontaneous
  Country: US (occurrence: US)
  Receive Date: 20200210
  Receipt Date: 20200302
  Transmission Date: 20200409
  Serious: No
  Sender: FDA-Public Use
  Company Number: US-VERTEX PHARMACEUTICALS-2020-002060

PATIENT
  Age: 26 Year
  Sex: Male

DRUGS (7)
  1. TRIKAFTA [Suspect]
     Active Substance: ELEXACAFTOR\IVACAFTOR\TEZACAFTOR
     Indication: CYSTIC FIBROSIS
     Dosage: 100MG ELEXACAFTOR/75MG TEZACAFTOR/50 MG IVACAFTOR IN MORNING AND 150MG IVACAFTOR IN EVENING
     Route: 048
     Dates: start: 20191108
  2. LORATADINE. [Concomitant]
     Active Substance: LORATADINE
  3. DOXYCYCLINE. [Concomitant]
     Active Substance: DOXYCYCLINE
  4. CEFDINIR. [Concomitant]
     Active Substance: CEFDINIR
  5. PREDNISONE. [Concomitant]
     Active Substance: PREDNISONE
  6. BETHKIS [Concomitant]
     Active Substance: TOBRAMYCIN
  7. PULMOZYME [Concomitant]
     Active Substance: DORNASE ALFA

REACTIONS (4)
  - Respiratory disorder [Unknown]
  - Insurance issue [Unknown]
  - Product dose omission [Unknown]
  - Respiratory tract congestion [Not Recovered/Not Resolved]

NARRATIVE: CASE EVENT DATE: 20191228
